FAERS Safety Report 8174022-1 (Version None)
Quarter: 2012Q1

REPORT INFORMATION
  Report Type: 
  Country: None (occurrence: None)
  Receive Date: 20120227
  Receipt Date: 20120217
  Transmission Date: 20120608
  Serious: Yes (Other)
  Sender: FDA-Public Use
  Company Number: 1202-048

PATIENT
  Age: 85 Year
  Sex: Male

DRUGS (3)
  1. LIPITOR [Concomitant]
  2. AVASTIN((SIMVASTATN) [Concomitant]
  3. EYLEA [Suspect]
     Indication: AGE-RELATED MACULAR DEGENERATION
     Dosage: 0.0667 MG, 1 IN 1 M, INTRAVITREAL
     Dates: start: 20111220

REACTIONS (1)
  - MACULAR HOLE [None]
